FAERS Safety Report 18497543 (Version 2)
Quarter: 2020Q4

REPORT INFORMATION
  Report Type: Report from Study
  Country: AR (occurrence: AR)
  Receive Date: 20201112
  Receipt Date: 20201209
  Transmission Date: 20210114
  Serious: Yes (Hospitalization, Other)
  Sender: FDA-Public Use
  Company Number: NVSC2020AR168755

PATIENT
  Age: 40 Year
  Sex: Female

DRUGS (1)
  1. ILARIS [Suspect]
     Active Substance: CANAKINUMAB
     Indication: BRUCELLOSIS
     Dosage: 150 MG, QMO
     Route: 058
     Dates: start: 20190607

REACTIONS (4)
  - Disease progression [Recovering/Resolving]
  - Brucellosis [Recovering/Resolving]
  - Disease recurrence [Unknown]
  - Uterine leiomyoma [Recovered/Resolved]

NARRATIVE: CASE EVENT DATE: 20190901
